FAERS Safety Report 20871982 (Version 1)
Quarter: 2022Q2

REPORT INFORMATION
  Report Type: Spontaneous
  Country: US (occurrence: None)
  Receive Date: 20220524
  Receipt Date: 20220524
  Transmission Date: 20220721
  Serious: Yes (Other)
  Sender: FDA-Public Use
  Company Number: None

PATIENT
  Age: 50 Year
  Sex: Male
  Weight: 104.3 kg

DRUGS (1)
  1. COSENTYX [Suspect]
     Active Substance: SECUKINUMAB
     Dosage: OTHER FREQUENCY : ONCE EVERY 4 WEEKS;?
     Route: 058
     Dates: start: 20220120

REACTIONS (6)
  - Pain in extremity [None]
  - Arthropathy [None]
  - Chest pain [None]
  - Alopecia [None]
  - Oropharyngeal pain [None]
  - Oral candidiasis [None]
